FAERS Safety Report 23510384 (Version 2)
Quarter: 2024Q1

REPORT INFORMATION
  Report Type: Spontaneous
  Country: US (occurrence: US)
  Receive Date: 20240211
  Receipt Date: 20240226
  Transmission Date: 20240410
  Serious: No
  Sender: FDA-Public Use
  Company Number: US-PCCINC-2024-PPL-000072

PATIENT

DRUGS (2)
  1. BACLOFEN [Interacting]
     Active Substance: BACLOFEN
     Indication: Spinal cord injury
     Dosage: 500 MICROGRAM/DAY
     Route: 037
  2. BACLOFEN [Interacting]
     Active Substance: BACLOFEN
     Dosage: 2000 MICROGRAM/DAY
     Route: 037
     Dates: start: 20231204

REACTIONS (3)
  - Drug interaction [Unknown]
  - Pruritus [Recovered/Resolved]
  - Product use in unapproved indication [Unknown]

NARRATIVE: CASE EVENT DATE: 20231214
